FAERS Safety Report 5401629-4 (Version None)
Quarter: 2007Q3

REPORT INFORMATION
  Report Type: 
  Country: None (occurrence: None)
  Receive Date: 20070731
  Receipt Date: 20070719
  Transmission Date: 20080115
  Serious: Yes (Other)
  Sender: FDA-Public Use
  Company Number: PE-PFIZER INC-2007019155

PATIENT
  Sex: Male

DRUGS (1)
  1. SUTENT [Suspect]
     Indication: METASTATIC RENAL CELL CARCINOMA
     Dosage: DAILY DOSE:37.5MG-TEXT:25 AND 12.5MG
     Route: 048
     Dates: start: 20060818, end: 20070701

REACTIONS (6)
  - ARTHRITIS [None]
  - COUGH [None]
  - DYSPNOEA [None]
  - HYPERTENSION [None]
  - MALAISE [None]
  - PULMONARY FIBROSIS [None]
